FAERS Safety Report 25589773 (Version 1)
Quarter: 2025Q3

REPORT INFORMATION
  Report Type: Spontaneous
  Country: EU (occurrence: EU)
  Receive Date: 20250722
  Receipt Date: 20250722
  Transmission Date: 20251021
  Serious: Yes (Hospitalization)
  Sender: RANBAXY
  Company Number: EU-AFSSAPS-AM2025000241

PATIENT
  Age: 67 Year
  Sex: Male
  Weight: 83 kg

DRUGS (13)
  1. IRBESARTAN [Suspect]
     Active Substance: IRBESARTAN
     Indication: Hypertension
     Dosage: 1 DOSAGE FORM, DAILY
     Route: 048
     Dates: end: 20250201
  2. BISOPROLOL [Suspect]
     Active Substance: BISOPROLOL
     Indication: Cardiac failure
     Dosage: 1.25 MILLIGRAM, DAILY
     Route: 048
     Dates: end: 20250201
  3. PANTOPRAZOLE [Suspect]
     Active Substance: PANTOPRAZOLE
     Indication: Blood cholesterol
     Dosage: 20 MILLIGRAM, DAILY
     Route: 048
     Dates: end: 20250201
  4. CEFIXIME [Suspect]
     Active Substance: CEFIXIME
     Indication: Urinary tract infection
     Dosage: 6 DOSAGE FORM, 1/WEEK
     Route: 048
     Dates: start: 20250121, end: 20250201
  5. NOVATREX (METHOTREXATE) [Suspect]
     Active Substance: METHOTREXATE SODIUM
     Indication: Rheumatoid arthritis
     Dosage: 6 DOSAGE FORM, 1/WEEK
     Route: 048
     Dates: start: 20080615, end: 20250124
  6. HYDROCHLOROTHIAZIDE [Suspect]
     Active Substance: HYDROCHLOROTHIAZIDE
     Indication: Hypertension
     Dosage: 1 DOSAGE FORM, DAILY
     Route: 048
     Dates: end: 20250201
  7. LIPTRUZET [Suspect]
     Active Substance: ATORVASTATIN CALCIUM\EZETIMIBE
     Indication: Blood cholesterol
     Dosage: 1 DOSAGE FORM, DAILY
     Route: 048
     Dates: end: 20250201
  8. IXPRIM [Suspect]
     Active Substance: ACETAMINOPHEN\TRAMADOL HYDROCHLORIDE
     Indication: Analgesic intervention supportive therapy
     Dosage: 3 DOSAGE FORM, DAILY
     Route: 048
     Dates: start: 20250111, end: 20250201
  9. THIOCOLCHICOSIDE [Suspect]
     Active Substance: THIOCOLCHICOSIDE
     Indication: Muscle relaxant therapy
     Dosage: 2 DOSAGE FORM, DAILY
     Route: 048
     Dates: start: 20250111, end: 20250201
  10. FOLIC ACID [Suspect]
     Active Substance: FOLIC ACID
     Indication: Folate deficiency
     Dosage: 150 MILLIGRAM, 1/WEEK
     Route: 048
  11. LOVENOX [Suspect]
     Active Substance: ENOXAPARIN SODIUM
     Indication: Thrombosis prophylaxis
     Dosage: 150 MILLIGRAM, 1/WEEK
     Route: 048
  12. KARDEGIC [Concomitant]
     Active Substance: ASPIRIN DL-LYSINE
     Indication: Product used for unknown indication
     Route: 065
  13. CLOPIDOGREL [Concomitant]
     Active Substance: CLOPIDOGREL BISULFATE
     Indication: Product used for unknown indication
     Route: 065

REACTIONS (2)
  - Pancytopenia [Recovered/Resolved]
  - Acute kidney injury [Recovered/Resolved]

NARRATIVE: CASE EVENT DATE: 20250131
